FAERS Safety Report 21722940 (Version 1)
Quarter: 2022Q4

REPORT INFORMATION
  Report Type: Spontaneous
  Country: US (occurrence: None)
  Receive Date: 20221212
  Receipt Date: 20221212
  Transmission Date: 20230113
  Serious: Yes (Other)
  Sender: FDA-Public Use
  Company Number: None

PATIENT
  Age: 88 Year
  Sex: Female

DRUGS (1)
  1. MICARDIS [Suspect]
     Active Substance: TELMISARTAN
     Dosage: FREQUENCY : DAILY;?
     Route: 048
     Dates: start: 20221022, end: 20221022

REACTIONS (4)
  - Feeling abnormal [None]
  - Flushing [None]
  - Blood pressure systolic increased [None]
  - Speech disorder [None]

NARRATIVE: CASE EVENT DATE: 20221022
